FAERS Safety Report 9756224 (Version 1)
Quarter: 2013Q4

REPORT INFORMATION
  Report Type: Spontaneous
  Country: US (occurrence: US)
  Receive Date: 20131213
  Receipt Date: 20131213
  Transmission Date: 20140711
  Serious: No
  Sender: FDA-Public Use
  Company Number: US-009507513-1312USA005137

PATIENT
  Sex: Female

DRUGS (7)
  1. CLARITIN-D-24 [Suspect]
     Indication: HYPERSENSITIVITY
     Dosage: UNK, UNKNOWN
     Route: 048
  2. CLARITIN-D-24 [Suspect]
     Indication: UPPER-AIRWAY COUGH SYNDROME
  3. CLARITIN-D-24 [Suspect]
     Indication: INCREASED UPPER AIRWAY SECRETION
  4. CLARITIN-D-24 [Suspect]
     Indication: RHINORRHOEA
  5. CLARITIN-D-24 [Suspect]
     Indication: EYE PRURITUS
  6. CLARITIN-D-24 [Suspect]
     Indication: SNEEZING
  7. CLARITIN-D-24 [Suspect]
     Indication: OROPHARYNGEAL PAIN

REACTIONS (3)
  - Dyspepsia [Unknown]
  - Condition aggravated [Unknown]
  - Drug effect decreased [Unknown]
